FAERS Safety Report 6644189-2 (Version None)
Quarter: 2010Q1

REPORT INFORMATION
  Report Type: 
  Country: None (occurrence: None)
  Receive Date: 20100322
  Receipt Date: 20100318
  Transmission Date: 20100710
  Serious: Yes (Death, Hospitalization)
  Sender: FDA-Public Use
  Company Number: PHHY2009CA49353

PATIENT
  Sex: Female

DRUGS (2)
  1. SANDOSTATIN LAR [Suspect]
     Indication: PANCREATIC CARCINOMA
     Dosage: 30 MG, ONCE A MONTH
     Route: 030
     Dates: start: 20090919, end: 20091214
  2. SANDOSTATIN [Suspect]
     Route: 058

REACTIONS (4)
  - CONFUSIONAL STATE [None]
  - DEATH [None]
  - MALAISE [None]
  - PALLIATIVE CARE [None]
